FAERS Safety Report 7612782-6 (Version None)
Quarter: 2011Q3

REPORT INFORMATION
  Report Type: 
  Country: None (occurrence: None)
  Receive Date: 20110708
  Receipt Date: 20110624
  Transmission Date: 20111222
  Serious: Yes (Life-Threatening)
  Sender: FDA-Public Use
  Company Number: 2011AP001325

PATIENT
  Age: 58 Year
  Sex: Male

DRUGS (5)
  1. TIZANIDINE HYDROCHLORIDE [Suspect]
     Indication: MUSCLE SPASTICITY
     Dosage: 2 MG;UNKNOWN; PO;QID
     Route: 048
     Dates: start: 20070101
  2. CITALOPRAM HYDROBROMIDE [Suspect]
     Indication: DEPRESSION
     Dosage: 20 MG; PO
     Route: 048
     Dates: start: 20110228, end: 20110228
  3. TRIMETHOPRIM (TRIMETHOPRIME) [Concomitant]
  4. DIPYRIDAMOLE [Concomitant]
  5. ASPIRIN [Concomitant]

REACTIONS (2)
  - DRUG INTERACTION [None]
  - HYPOTENSION [None]
